FAERS Safety Report 12518503 (Version 1)
Quarter: 2016Q2

REPORT INFORMATION
  Report Type: Spontaneous
  Country: US (occurrence: US)
  Receive Date: 20160630
  Receipt Date: 20160630
  Transmission Date: 20160815
  Serious: Yes (Other)
  Sender: FDA-Public Use
  Company Number: US-TEVA-671788USA

PATIENT
  Age: 55 Year
  Sex: Female

DRUGS (1)
  1. ZECUITY [Suspect]
     Active Substance: SUMATRIPTAN SUCCINATE
     Route: 062
     Dates: start: 20160619, end: 20160619

REACTIONS (7)
  - Sunburn [Recovering/Resolving]
  - Application site swelling [Recovering/Resolving]
  - Application site pain [Recovered/Resolved]
  - Application site erythema [Recovering/Resolving]
  - Application site dryness [Unknown]
  - Application site discolouration [Recovering/Resolving]
  - Medication residue present [Recovered/Resolved]

NARRATIVE: CASE EVENT DATE: 20160619
